FAERS Safety Report 21173713 (Version 1)
Quarter: 2022Q3

REPORT INFORMATION
  Report Type: Spontaneous
  Country: US (occurrence: US)
  Receive Date: 20220804
  Receipt Date: 20220804
  Transmission Date: 20221026
  Serious: No
  Sender: FDA-Public Use
  Company Number: US-PERRIGO-21US030474

PATIENT
  Age: 71 Year
  Sex: Female
  Weight: 50.794 kg

DRUGS (2)
  1. LORATADINE [Suspect]
     Active Substance: LORATADINE
     Indication: Perennial allergy
     Dosage: 10 MG, QD
     Route: 048
     Dates: start: 20211020, end: 20211101
  2. LORATADINE [Suspect]
     Active Substance: LORATADINE
     Dosage: 20 MG, SINGLE
     Route: 048
     Dates: start: 20211102, end: 20211102

REACTIONS (4)
  - Extra dose administered [Recovered/Resolved]
  - Expired product administered [Recovered/Resolved]
  - Fatigue [Recovered/Resolved]
  - Wrong product administered [Recovered/Resolved]

NARRATIVE: CASE EVENT DATE: 20211101
